FAERS Safety Report 8807290 (Version 1)
Quarter: 2012Q4

REPORT INFORMATION
  Report Type: 
  Country: TW (occurrence: TW)
  Receive Date: 20120925
  Receipt Date: 20120925
  Transmission Date: 20130627
  Serious: Yes (Other)
  Sender: FDA-Public Use
  Company Number: TW-WATSON-2012-16423

PATIENT
  Age: 29 Year
  Sex: Male

DRUGS (1)
  1. IBUPROFEN [Suspect]
     Indication: OROPHARYNGEAL PAIN
     Dosage: UNK
     Route: 065

REACTIONS (7)
  - Drug eruption [Unknown]
  - Skin burning sensation [None]
  - Erythema [None]
  - Blister [None]
  - Lip erosion [None]
  - Skin erosion [None]
  - Penile ulceration [None]
